FAERS Safety Report 21924410 (Version 1)
Quarter: 2023Q1

REPORT INFORMATION
  Report Type: Report from Study
  Country: BR (occurrence: BR)
  Receive Date: 20230130
  Receipt Date: 20230130
  Transmission Date: 20230418
  Serious: Yes (Hospitalization)
  Sender: FDA-Public Use
  Company Number: BR-AstraZeneca-2023A017205

PATIENT
  Age: 86 Year
  Sex: Female
  Weight: 57 kg

DRUGS (4)
  1. METOPROLOL SUCCINATE [Suspect]
     Active Substance: METOPROLOL SUCCINATE
     Indication: Hypertension
     Route: 048
     Dates: start: 2018
  2. METOPROLOL SUCCINATE [Suspect]
     Active Substance: METOPROLOL SUCCINATE
     Route: 048
  3. ATORVASTATIN CALCIUM [Concomitant]
     Active Substance: ATORVASTATIN CALCIUM
     Indication: Blood pressure abnormal
     Dosage: A TABLET
     Route: 048
  4. RIVAROXABAN [Concomitant]
     Active Substance: RIVAROXABAN
     Indication: Anticoagulant therapy
     Dosage: A TABLET AFTER LUNCH
     Route: 048

REACTIONS (7)
  - Fall [Recovering/Resolving]
  - Femur fracture [Recovering/Resolving]
  - Heart rate increased [Recovered/Resolved]
  - Procedural site reaction [Unknown]
  - Pain [Unknown]
  - Balance disorder [Unknown]
  - Drug effect less than expected [Unknown]

NARRATIVE: CASE EVENT DATE: 20221201
